FAERS Safety Report 4385481-4 (Version None)
Quarter: 2004Q2

REPORT INFORMATION
  Report Type: 
  Country: None (occurrence: None)
  Receive Date: 20040628
  Receipt Date: 20031121
  Transmission Date: 20050107
  Serious: Yes (Hospitalization)
  Sender: FDA-Public Use
  Company Number: 200311387JP

PATIENT
  Age: 50 Year
  Sex: Female

DRUGS (10)
  1. ARAVA [Suspect]
     Indication: RHEUMATOID ARTHRITIS
     Route: 048
     Dates: start: 20031106, end: 20031119
  2. PREDONINE [Concomitant]
     Indication: MIXED CONNECTIVE TISSUE DISEASE
     Route: 048
     Dates: start: 19930901
  3. BUFFERIN [Concomitant]
     Indication: PERIPHERAL VASCULAR DISORDER
     Route: 048
     Dates: start: 20001031, end: 20040323
  4. ULGUT [Concomitant]
     Indication: GASTRITIS
     Route: 048
     Dates: start: 19950217
  5. LIPITOR [Concomitant]
     Indication: HYPERLIPIDAEMIA
     Route: 048
     Dates: start: 20011113
  6. DORNER [Concomitant]
     Indication: PERIPHERAL VASCULAR DISORDER
     Route: 048
     Dates: start: 20020524
  7. BREDININ [Concomitant]
     Indication: MIXED CONNECTIVE TISSUE DISEASE
     Route: 048
     Dates: start: 20030207
  8. LORCAM [Concomitant]
     Indication: RHEUMATOID ARTHRITIS
     Route: 048
     Dates: start: 20030604
  9. SELBEX [Concomitant]
     Indication: GASTRITIS
     Route: 048
     Dates: start: 20030604
  10. BAYASPIRIN [Concomitant]
     Indication: PERIPHERAL VASCULAR DISORDER
     Route: 048
     Dates: start: 20040324

REACTIONS (17)
  - ALANINE AMINOTRANSFERASE INCREASED [None]
  - ASPARTATE AMINOTRANSFERASE INCREASED [None]
  - BLOOD ALKALINE PHOSPHATASE INCREASED [None]
  - BLOOD CREATININE DECREASED [None]
  - BLOOD LACTATE DEHYDROGENASE INCREASED [None]
  - DYSGEUSIA [None]
  - EATING DISORDER [None]
  - ERYTHEMA [None]
  - LIP EROSION [None]
  - LYMPHOCYTE COUNT DECREASED [None]
  - NAUSEA [None]
  - PLATELET COUNT DECREASED [None]
  - PROTEIN URINE PRESENT [None]
  - PYREXIA [None]
  - RASH PAPULAR [None]
  - SKIN TEST POSITIVE [None]
  - WHITE BLOOD CELL COUNT DECREASED [None]
